FAERS Safety Report 5605529-6 (Version None)
Quarter: 2008Q1

REPORT INFORMATION
  Report Type: 
  Country: None (occurrence: None)
  Receive Date: 20080125
  Receipt Date: 20080125
  Transmission Date: 20080703
  Serious: Yes (Other)
  Sender: FDA-Public Use
  Company Number: None

PATIENT
  Sex: Female
  Weight: 52.1637 kg

DRUGS (3)
  1. ZETIA [Suspect]
     Indication: BLOOD CHOLESTEROL ABNORMAL
     Dosage: 10 MG 1 DAY ORAL LATE 06 EARLY 07 MID JAN 08
     Route: 048
     Dates: start: 20060101
  2. ZETIA [Suspect]
     Indication: BLOOD CHOLESTEROL ABNORMAL
     Dosage: 10 MG 1 DAY ORAL LATE 06 EARLY 07 MID JAN 08
     Route: 048
     Dates: start: 20070101
  3. ZETIA [Suspect]
     Indication: BLOOD CHOLESTEROL ABNORMAL
     Dosage: 10 MG 1 DAY ORAL LATE 06 EARLY 07 MID JAN 08
     Route: 048
     Dates: start: 20080101

REACTIONS (12)
  - ABDOMINAL PAIN UPPER [None]
  - AGGRESSION [None]
  - ANOREXIA [None]
  - CONSTIPATION [None]
  - HEADACHE [None]
  - INSOMNIA [None]
  - MUSCLE ATROPHY [None]
  - MUSCLE SPASMS [None]
  - MYALGIA [None]
  - NERVOUS SYSTEM DISORDER [None]
  - PAIN [None]
  - SKIN DISORDER [None]
